FAERS Safety Report 23055848 (Version 1)
Quarter: 2023Q4

REPORT INFORMATION
  Report Type: Spontaneous
  Country: US (occurrence: US)
  Receive Date: 20231011
  Receipt Date: 20231011
  Transmission Date: 20240110
  Serious: No
  Sender: FDA-Public Use
  Company Number: US-JNJFOC-20230962823

PATIENT

DRUGS (1)
  1. MOTRIN INFANTS [Suspect]
     Active Substance: IBUPROFEN
     Indication: Product used for unknown indication
     Route: 065

REACTIONS (2)
  - Wrong product administered [Unknown]
  - Incorrect dose administered [Unknown]
